FAERS Safety Report 8046431-2 (Version None)
Quarter: 2012Q1

REPORT INFORMATION
  Report Type: 
  Country: None (occurrence: None)
  Receive Date: 20120113
  Receipt Date: 20120109
  Transmission Date: 20120608
  Serious: Yes (Other)
  Sender: FDA-Public Use
  Company Number: US-US-EMD SERONO, INC.-7078946

PATIENT
  Sex: Male

DRUGS (6)
  1. REBIF [Suspect]
     Indication: MULTIPLE SCLEROSIS
     Route: 058
     Dates: start: 20090514, end: 20111201
  2. HYDROCODONE BITARTRATE [Suspect]
  3. UNSPCIFED MEDICATION [Concomitant]
  4. XANAX [Concomitant]
  5. BACLOFEN [Concomitant]
  6. VITAMIN D PILLS [Concomitant]

REACTIONS (11)
  - COGNITIVE DISORDER [None]
  - MULTIPLE SCLEROSIS RELAPSE [None]
  - SLEEP TALKING [None]
  - BRUXISM [None]
  - GASTROINTESTINAL PAIN [None]
  - ABDOMINAL DISCOMFORT [None]
  - CONSTIPATION [None]
  - GAIT DISTURBANCE [None]
  - MOOD ALTERED [None]
  - INTESTINAL OBSTRUCTION [None]
  - ANGER [None]
